FAERS Safety Report 12003856 (Version 1)
Quarter: 2016Q1

REPORT INFORMATION
  Report Type: Spontaneous
  Country: ES (occurrence: ES)
  Receive Date: 20160204
  Receipt Date: 20160204
  Transmission Date: 20160526
  Serious: Yes (Hospitalization)
  Sender: FDA-Public Use
  Company Number: ES-AMGEN-ESPSP2016012035

PATIENT
  Age: 33 Year
  Sex: Male

DRUGS (4)
  1. ALTISBEN [Concomitant]
     Active Substance: SERTRALINE HYDROCHLORIDE
     Indication: AFFECTIVE DISORDER
     Dosage: 50 MG, 1X/DAY (ONE TABLET OF 50 MG EVERY 24 HOURS)
  2. XEPLION [Concomitant]
     Active Substance: PALIPERIDONE PALMITATE
     Indication: MENTAL DISABILITY
     Dosage: 1 DF, MONTHLY (ONE INJECTION MONTHLY)
  3. AKINETON [Concomitant]
     Active Substance: BIPERIDEN HYDROCHLORIDE
     Indication: RESTLESS LEGS SYNDROME
     Dosage: 1 DF, 1X/DAY (ONE TABLET EVERY 24 HOURS)
  4. ENBREL [Suspect]
     Active Substance: ETANERCEPT
     Indication: PSORIATIC ARTHROPATHY
     Dosage: 50 MG, ONCE WEEKLY
     Route: 058
     Dates: start: 20150306

REACTIONS (1)
  - Cholelithiasis [Recovered/Resolved]
